FAERS Safety Report 9401595 (Version 2)
Quarter: 2013Q3

REPORT INFORMATION
  Report Type: Spontaneous
  Country: FR (occurrence: FR)
  Receive Date: 20130716
  Receipt Date: 20130827
  Transmission Date: 20140515
  Serious: Yes (Other)
  Sender: FDA-Public Use
  Company Number: FR-AMGEN-FRASP2013049232

PATIENT
  Age: 34 Year
  Sex: Female

DRUGS (2)
  1. ENBREL [Suspect]
     Indication: ANKYLOSING SPONDYLITIS
     Dosage: 50 MG, QWK
     Route: 058
     Dates: start: 201303
  2. AERIUS                             /01398501/ [Concomitant]
     Dosage: UNK UNK, UNK

REACTIONS (4)
  - Otitis media chronic [Not Recovered/Not Resolved]
  - Allergic otitis media [Not Recovered/Not Resolved]
  - Allergic sinusitis [Not Recovered/Not Resolved]
  - Chronic sinusitis [Not Recovered/Not Resolved]
